FAERS Safety Report 8190706-3 (Version None)
Quarter: 2012Q1

REPORT INFORMATION
  Report Type: 
  Country: None (occurrence: None)
  Receive Date: 20120307
  Receipt Date: 20120228
  Transmission Date: 20120608
  Serious: Yes (Other)
  Sender: FDA-Public Use
  Company Number: US-BAYER-201014981NA

PATIENT
  Age: 32 Year
  Sex: Female
  Weight: 101.13 kg

DRUGS (4)
  1. ALBUTEROL [Concomitant]
  2. MIRENA [Suspect]
     Indication: CONTRACEPTION
     Dosage: 20 ?G/D, CONT
     Route: 015
     Dates: start: 20091218, end: 20100128
  3. CLARITIN [Concomitant]
  4. SUDAFED 12 HOUR [Concomitant]

REACTIONS (2)
  - ABORTION SPONTANEOUS [None]
  - PREGNANCY WITH CONTRACEPTIVE DEVICE [None]
